FAERS Safety Report 4300210-8 (Version None)
Quarter: 2004Q1

REPORT INFORMATION
  Report Type: 
  Country: None (occurrence: None)
  Receive Date: 20040218
  Receipt Date: 20040205
  Transmission Date: 20041129
  Serious: Yes (Life-Threatening, Hospitalization)
  Sender: FDA-Public Use
  Company Number: 2004005828

PATIENT
  Age: 23 Year
  Sex: Male

DRUGS (4)
  1. ZELDOX [Suspect]
     Indication: SCHIZOPHRENIA
     Dosage: 120 MG (BID), ORAL
     Route: 048
     Dates: start: 20031101
  2. ALPRAZOLAM [Suspect]
     Indication: ILL-DEFINED DISORDER
     Dates: start: 20040101, end: 20040101
  3. DIAZEPAM [Concomitant]
  4. BIPERIDEN HYDROCHLORIDE TAB [Concomitant]

REACTIONS (2)
  - ANXIETY [None]
  - SUICIDE ATTEMPT [None]
